FAERS Safety Report 7326577 (Version 2)
Quarter: 2013Q4

REPORT INFORMATION
  Report Type: Other
  Country: DE (occurrence: DE)
  Receive Date: 20100321
  Receipt Date: 20131005
  Transmission Date: 20140711
  Serious: Yes (Other)
  Sender: FDA-Public Use
  Company Number: DE-BRISTOL-MYERS SQUIBB COMPANY-15023062

PATIENT
  Age: 24 Year
  Sex: Male

DRUGS (3)
  1. CISPLATIN [Suspect]
     Indication: TESTICULAR EMBRYONAL CARCINOMA
  2. ETOPOSIDE [Suspect]
     Indication: TESTICULAR EMBRYONAL CARCINOMA
  3. BLEOMYCIN SULFATE [Suspect]
     Indication: TESTICULAR EMBRYONAL CARCINOMA

REACTIONS (1)
  - Ischaemic stroke [Unknown]
